FAERS Safety Report 26172204 (Version 1)
Quarter: 2025Q4

REPORT INFORMATION
  Report Type: Spontaneous
  Country: GB (occurrence: GB)
  Receive Date: 20251218
  Receipt Date: 20251218
  Transmission Date: 20260117
  Serious: Yes (Disabling, Other)
  Sender: ASCEND THERAPEUTICS US, LLC
  Company Number: GB-Ascend Therapeutics US, LLC-2190768

PATIENT
  Age: 51 Year
  Sex: Female

DRUGS (7)
  1. ESTROGEL [Suspect]
     Active Substance: ESTRADIOL
     Indication: Ill-defined disorder
     Route: 048
     Dates: start: 20251008
  2. ESTRADIOL [Suspect]
     Active Substance: ESTRADIOL
     Route: 048
     Dates: start: 20251008
  3. PROGESTERONE [Concomitant]
     Active Substance: PROGESTERONE
     Dates: start: 20251008
  4. AMLODIPINE [Concomitant]
     Active Substance: AMLODIPINE BESYLATE
     Dates: start: 20250910
  5. OMEPRAZOLE [Concomitant]
     Active Substance: OMEPRAZOLE
     Dates: start: 20251127
  6. FERROUS FUMARATE [Concomitant]
     Active Substance: FERROUS FUMARATE
     Dates: start: 20251124
  7. ESTRADIOL [Suspect]
     Active Substance: ESTRADIOL

REACTIONS (4)
  - Musculoskeletal stiffness [Unknown]
  - Myalgia [Unknown]
  - Myofascial spasm [Recovering/Resolving]
  - Muscle spasms [Recovering/Resolving]
